FAERS Safety Report 7702042-7 (Version None)
Quarter: 2011Q3

REPORT INFORMATION
  Report Type: 
  Country: None (occurrence: None)
  Receive Date: 20110822
  Receipt Date: 20110816
  Transmission Date: 20111222
  Serious: Yes (Other)
  Sender: FDA-Public Use
  Company Number: AU-PFIZER INC-2011189700

PATIENT
  Sex: Female

DRUGS (1)
  1. SILDENAFIL CITRATE [Suspect]
     Indication: PULMONARY HYPERTENSION
     Dosage: 25 MG, 3X/DAY
     Route: 048
     Dates: start: 20110814

REACTIONS (7)
  - FLUSHING [None]
  - BACK PAIN [None]
  - MYALGIA [None]
  - DEPRESSION [None]
  - SWELLING FACE [None]
  - CHILLS [None]
  - INFLUENZA [None]
